FAERS Safety Report 14245126 (Version 2)
Quarter: 2018Q1

REPORT INFORMATION
  Report Type: Spontaneous
  Country: GB (occurrence: GB)
  Receive Date: 20171202
  Receipt Date: 20180131
  Transmission Date: 20180508
  Serious: Yes (Life-Threatening, Hospitalization)
  Sender: FDA-Public Use
  Company Number: GB-SUN PHARMACEUTICAL INDUSTRIES LTD-2017R1-156016

PATIENT
  Sex: Male

DRUGS (4)
  1. QUETIAPINE. [Concomitant]
     Active Substance: QUETIAPINE
     Indication: PRODUCT USED FOR UNKNOWN INDICATION
     Dosage: 200 MG, QD
     Route: 065
  2. LITHIUM. [Suspect]
     Active Substance: LITHIUM
     Indication: PRODUCT USED FOR UNKNOWN INDICATION
     Dosage: 400 MG, QD
     Route: 065
  3. LITHIUM. [Suspect]
     Active Substance: LITHIUM
     Indication: PRODUCT USED FOR UNKNOWN INDICATION
     Dosage: 50 X 400 MG
     Route: 065
  4. CLOMIPRAMINE [Concomitant]
     Active Substance: CLOMIPRAMINE
     Indication: PRODUCT USED FOR UNKNOWN INDICATION
     Dosage: 75 MG, QD
     Route: 065

REACTIONS (18)
  - Abdominal pain [Unknown]
  - Dysarthria [Unknown]
  - Condition aggravated [Unknown]
  - Tremor [Unknown]
  - Overdose [Unknown]
  - Dizziness [Unknown]
  - Neurotoxicity [Unknown]
  - Depression [Unknown]
  - Stupor [Unknown]
  - Suicide attempt [Unknown]
  - Bundle branch block right [Unknown]
  - Dystonia [Unknown]
  - Electrocardiogram QT prolonged [Unknown]
  - Catatonia [Unknown]
  - Cerebellar ataxia [Unknown]
  - Diarrhoea [Unknown]
  - Rebound effect [Unknown]
  - Vomiting [Unknown]
